FAERS Safety Report 4412853-1 (Version None)
Quarter: 2004Q3

REPORT INFORMATION
  Report Type: 
  Country: None (occurrence: None)
  Receive Date: 20040730
  Receipt Date: 20040730
  Transmission Date: 20050211
  Serious: Yes (Hospitalization)
  Sender: FDA-Public Use
  Company Number: None

PATIENT
  Sex: Female

DRUGS (4)
  1. REMICADE [Suspect]
     Dosage: 200 MG ONE TIME INTRAVENOUS
     Route: 042
     Dates: start: 20040729, end: 20040729
  2. DIPHENHYDRAMINE HCL [Concomitant]
  3. APAP TAB [Concomitant]
  4. METHPREDNISOLONE [Concomitant]

REACTIONS (2)
  - CONVULSION [None]
  - INFUSION RELATED REACTION [None]
